FAERS Safety Report 21641607 (Version 3)
Quarter: 2025Q3

REPORT INFORMATION
  Report Type: Spontaneous
  Country: EU (occurrence: EU)
  Receive Date: 20221125
  Receipt Date: 20250813
  Transmission Date: 20251021
  Serious: Yes (Hospitalization, Other)
  Sender: AUROBINDO
  Company Number: EU-TOWA-202203823

PATIENT
  Age: 78 Year
  Sex: Male

DRUGS (2)
  1. LEVOFLOXACIN [Suspect]
     Active Substance: LEVOFLOXACIN
     Indication: Product used for unknown indication
     Route: 042
  2. LEVOFLOXACIN [Suspect]
     Active Substance: LEVOFLOXACIN
     Route: 042

REACTIONS (8)
  - Cutaneous vasculitis [Recovering/Resolving]
  - Purpura [Recovering/Resolving]
  - Acute kidney injury [Unknown]
  - Leukocytosis [Recovering/Resolving]
  - Condition aggravated [Recovering/Resolving]
  - Arthralgia [Recovering/Resolving]
  - Oedema peripheral [Recovering/Resolving]
  - Neutrophilia [Recovering/Resolving]
